FAERS Safety Report 4440843-1 (Version None)
Quarter: 2004Q3

REPORT INFORMATION
  Report Type: 
  Country: None (occurrence: None)
  Receive Date: 20040903
  Receipt Date: 20040823
  Transmission Date: 20050211
  Serious: Yes (Death)
  Sender: FDA-Public Use
  Company Number: JP-GLAXOSMITHKLINE-B0343697A

PATIENT
  Sex: Male

DRUGS (2)
  1. ZEFIX [Suspect]
     Indication: HEPATITIS B
     Route: 048
  2. IMMUNOGOBULIN ANTI HB [Concomitant]
     Route: 042

REACTIONS (1)
  - ARRHYTHMIA [None]
